FAERS Safety Report 16070143 (Version 1)
Quarter: 2019Q1

REPORT INFORMATION
  Report Type: Spontaneous
  Country: GB (occurrence: GB)
  Receive Date: 20190314
  Receipt Date: 20190314
  Transmission Date: 20190418
  Serious: Yes (Hospitalization)
  Sender: FDA-Public Use
  Company Number: GB-ACCORD-112385

PATIENT
  Age: 83 Year
  Sex: Male

DRUGS (10)
  1. METHOTREXATE. [Concomitant]
     Active Substance: METHOTREXATE
  2. LAXIDO [Concomitant]
     Active Substance: POLYETHYLENE GLYCOL 3350\POTASSIUM CHLORIDE\SODIUM BICARBONATE\SODIUM CHLORIDE
     Route: 048
  3. BISOPROLOL [Concomitant]
     Active Substance: BISOPROLOL
  4. CANDESARTAN. [Suspect]
     Active Substance: CANDESARTAN
     Indication: PRODUCT USED FOR UNKNOWN INDICATION
     Dosage: AT NIGHT
     Route: 048
     Dates: end: 20180926
  5. PARACETAMOL [Concomitant]
     Active Substance: ACETAMINOPHEN
     Dosage: 250MG/5ML
     Route: 048
  6. APIXABAN [Concomitant]
     Active Substance: APIXABAN
  7. SPIRONOLACTONE. [Suspect]
     Active Substance: SPIRONOLACTONE
     Indication: PRODUCT USED FOR UNKNOWN INDICATION
     Route: 048
     Dates: end: 20180926
  8. FOLIC ACID. [Concomitant]
     Active Substance: FOLIC ACID
     Dosage: 5MG/5ML
     Route: 048
  9. FERROUS FUMARATE [Concomitant]
     Active Substance: FERROUS FUMARATE
     Dosage: 140MG/5ML
     Route: 048
  10. CODEINE [Concomitant]
     Active Substance: CODEINE

REACTIONS (4)
  - Lower respiratory tract infection [Unknown]
  - Hyperkalaemia [Recovering/Resolving]
  - Confusional state [Unknown]
  - Aggression [Unknown]

NARRATIVE: CASE EVENT DATE: 20180926
